FAERS Safety Report 10047915 (Version 1)
Quarter: 2014Q1

REPORT INFORMATION
  Report Type: Spontaneous
  Country: US (occurrence: US)
  Receive Date: 20140331
  Receipt Date: 20140331
  Transmission Date: 20141002
  Serious: Yes (Hospitalization)
  Sender: FDA-Public Use
  Company Number: US-BAXTER-2014BAX015471

PATIENT
  Sex: Male

DRUGS (3)
  1. DIANEAL LOW CALCIUM [Suspect]
     Indication: RENAL FAILURE CHRONIC
     Route: 033
  2. DIANEAL LOW CALCIUM [Suspect]
     Dosage: LAST FILL
     Route: 033
  3. COUMADIN [Concomitant]
     Indication: ATRIAL FIBRILLATION
     Route: 048
     Dates: start: 201212

REACTIONS (3)
  - Fall [Recovering/Resolving]
  - Thrombosis [Recovering/Resolving]
  - Muscle spasms [Recovered/Resolved]
